FAERS Safety Report 16415282 (Version 1)
Quarter: 2019Q3

REPORT INFORMATION
  Report Type: Spontaneous
  Country: US (occurrence: US)
  Receive Date: 20190609
  Receipt Date: 20190609
  Transmission Date: 20191004
  Serious: No
  Sender: FDA-Public Use
  Company Number: None

PATIENT
  Age: 35 Year
  Sex: Male
  Weight: 89.1 kg

DRUGS (4)
  1. SAW PALMETTO [Concomitant]
     Active Substance: HERBALS\SAW PALMETTO
  2. TEST CYP/PROP 200/20 MG/ML [Suspect]
     Active Substance: TESTOSTERONE CYPIONATE\TESTOSTERONE PROPIONATE
     Indication: HYPOGONADISM
     Dosage: ?          QUANTITY:1 CC;OTHER FREQUENCY:TWICE A WEEK;?
     Route: 030
     Dates: start: 20190401, end: 20190530
  3. FISH OIL [Concomitant]
     Active Substance: FISH OIL
  4. ANASTRAZOLE [Concomitant]
     Active Substance: ANASTROZOLE

REACTIONS (3)
  - Blood testosterone decreased [None]
  - Drug ineffective [None]
  - Blood oestrogen decreased [None]

NARRATIVE: CASE EVENT DATE: 20190530
